FAERS Safety Report 4738042-9 (Version None)
Quarter: 2005Q3

REPORT INFORMATION
  Report Type: 
  Country: None (occurrence: None)
  Receive Date: 20050805
  Receipt Date: 20050725
  Transmission Date: 20060218
  Serious: Yes (Hospitalization)
  Sender: FDA-Public Use
  Company Number: 2005106562

PATIENT
  Age: 69 Year
  Sex: Male
  Weight: 66 kg

DRUGS (1)
  1. CABERGOLINE [Suspect]
     Indication: ILL-DEFINED DISORDER
     Dosage: 4 MG (4 MG, ONCE DAILY), ORAL
     Route: 048
     Dates: start: 20020101, end: 20040526

REACTIONS (3)
  - ASTHMA [None]
  - PLEURAL ADHESION [None]
  - TOTAL LUNG CAPACITY DECREASED [None]
